FAERS Safety Report 14028880 (Version 6)
Quarter: 2019Q3

REPORT INFORMATION
  Report Type: Report from Study
  Country: US (occurrence: US)
  Receive Date: 20170930
  Receipt Date: 20190925
  Transmission Date: 20191004
  Serious: Yes (Hospitalization, Other)
  Sender: FDA-Public Use
  Company Number: US-SA-2017SA092665

PATIENT
  Age: 78 Year
  Sex: Female

DRUGS (5)
  1. TERIFLUNOMIDE. [Suspect]
     Active Substance: TERIFLUNOMIDE
     Dosage: 14 MG QD
     Route: 048
     Dates: start: 20170415, end: 2017
  2. TERIFLUNOMIDE. [Suspect]
     Active Substance: TERIFLUNOMIDE
     Dosage: 14 MG, QD
     Route: 048
     Dates: start: 2017, end: 20170801
  3. TERIFLUNOMIDE. [Suspect]
     Active Substance: TERIFLUNOMIDE
     Indication: MULTIPLE SCLEROSIS
     Dosage: 7 MG, QD
     Route: 048
     Dates: start: 20150101
  4. METOPROLOL. [Concomitant]
     Active Substance: METOPROLOL
     Dosage: UNK
  5. ASPIRIN [ACETYLSALICYLIC ACID] [Concomitant]
     Active Substance: ASPIRIN
     Dosage: UNK

REACTIONS (14)
  - Decreased immune responsiveness [Unknown]
  - Central nervous system lesion [Not Recovered/Not Resolved]
  - Aortic valve replacement [Unknown]
  - Product dose omission [Unknown]
  - Pneumonia [Unknown]
  - Multiple sclerosis relapse [Unknown]
  - Malaise [Not Recovered/Not Resolved]
  - Cardiac pacemaker replacement [Unknown]
  - Influenza [Unknown]
  - Acne [Unknown]
  - Pyrexia [Not Recovered/Not Resolved]
  - Lower respiratory tract infection [Unknown]
  - Pain [Not Recovered/Not Resolved]
  - Headache [Not Recovered/Not Resolved]

NARRATIVE: CASE EVENT DATE: 2017
